FAERS Safety Report 5370414-4 (Version None)
Quarter: 2007Q2

REPORT INFORMATION
  Report Type: 
  Country: None (occurrence: None)
  Receive Date: 20070626
  Receipt Date: 20070118
  Transmission Date: 20071010
  Serious: No
  Sender: FDA-Public Use
  Company Number: US-AMGEN-US207452

PATIENT
  Sex: Male

DRUGS (26)
  1. ARANESP [Suspect]
     Indication: DRUG USE FOR UNKNOWN INDICATION
     Route: 065
     Dates: start: 20061001
  2. ALBUTEROL [Concomitant]
     Route: 055
  3. SENOKOT [Concomitant]
     Route: 065
  4. ACETAMINOPHEN [Concomitant]
     Route: 065
  5. ASPIRIN [Concomitant]
     Route: 065
  6. BISACODYL [Concomitant]
     Route: 065
  7. CALCITRIOL [Concomitant]
     Route: 065
  8. VITAMIN B-12 [Concomitant]
     Route: 030
  9. PLAVIX [Concomitant]
     Route: 065
  10. NORVASC [Concomitant]
     Route: 065
  11. NOVOLIN R [Concomitant]
     Route: 065
  12. MILK OF MAGNESIA [Concomitant]
     Route: 065
  13. NITROGLYCERIN [Concomitant]
     Route: 060
  14. SINGULAIR [Concomitant]
     Route: 065
  15. VITAMIN A [Concomitant]
     Route: 065
  16. SODIUM BICARBONATE [Concomitant]
     Route: 065
  17. PRILOSEC [Concomitant]
     Route: 065
  18. DOCUSATE [Concomitant]
     Route: 065
  19. DUONEB [Concomitant]
     Route: 065
  20. FINASTERIDE [Concomitant]
     Route: 065
  21. ROBITUSSIN-DM [Concomitant]
     Route: 065
  22. VICODIN [Concomitant]
     Route: 065
  23. ISOSORBIDE DINITRATE [Concomitant]
     Route: 065
  24. LIPITOR [Concomitant]
     Route: 065
  25. METOPROLOL SUCCINATE [Concomitant]
     Route: 065
  26. LISINOPRIL [Concomitant]
     Route: 065

REACTIONS (1)
  - HAEMOGLOBIN DECREASED [None]
